FAERS Safety Report 12204259 (Version 2)
Quarter: 2016Q2

REPORT INFORMATION
  Report Type: Report from Study
  Country: CA (occurrence: CA)
  Receive Date: 20160323
  Receipt Date: 20160419
  Transmission Date: 20160815
  Serious: Yes (Hospitalization)
  Sender: FDA-Public Use
  Company Number: CA-GILEAD-2016-0203921

PATIENT
  Age: 84 Year
  Sex: Male

DRUGS (10)
  1. PROCHLORPERAZINE. [Concomitant]
     Active Substance: PROCHLORPERAZINE
  2. LACTULOSE. [Concomitant]
     Active Substance: LACTULOSE
  3. SENOKOT [Concomitant]
     Active Substance: SENNOSIDES
  4. ALLOPURINOL. [Concomitant]
     Active Substance: ALLOPURINOL
  5. HYDROMORPHONE [Concomitant]
     Active Substance: HYDROMORPHONE
  6. FUROSEMIDE                         /00032602/ [Concomitant]
     Active Substance: FUROSEMIDE
  7. ZYDELIG [Suspect]
     Active Substance: IDELALISIB
     Indication: CHRONIC LYMPHOCYTIC LEUKAEMIA
     Dosage: 150 MG, UNK
     Route: 048
     Dates: start: 20151015
  8. BISOPROLOL [Concomitant]
     Active Substance: BISOPROLOL
  9. ASPIRIN                            /00002701/ [Concomitant]
     Active Substance: ASPIRIN
  10. DOCUSATE [Concomitant]
     Active Substance: DOCUSATE

REACTIONS (1)
  - Hyperkalaemia [Unknown]

NARRATIVE: CASE EVENT DATE: 2016
